FAERS Safety Report 4511176-X (Version None)
Quarter: 2004Q4

REPORT INFORMATION
  Report Type: 
  Country: None (occurrence: None)
  Receive Date: 20041128
  Receipt Date: 20041020
  Transmission Date: 20050328
  Serious: Yes (Other)
  Sender: FDA-Public Use
  Company Number: PHHO2004CA14980

PATIENT
  Age: 41 Year
  Sex: Female

DRUGS (3)
  1. CLOZARIL [Suspect]
     Dates: start: 20040606
  2. SERTRALINE HCL [Concomitant]
  3. LITHIUM [Concomitant]

REACTIONS (4)
  - INFECTIOUS MONONUCLEOSIS [None]
  - MUMPS [None]
  - NASOPHARYNGITIS [None]
  - PAROTITIS [None]
